FAERS Safety Report 21591485 (Version 2)
Quarter: 2022Q4

REPORT INFORMATION
  Report Type: Report from Study
  Country: FR (occurrence: FR)
  Receive Date: 20221114
  Receipt Date: 20221229
  Transmission Date: 20230113
  Serious: Yes (Hospitalization, Other)
  Sender: FDA-Public Use
  Company Number: FR-JNJFOC-20221114046

PATIENT
  Age: 71 Year
  Sex: Female
  Weight: 56.4 kg

DRUGS (7)
  1. BORTEZOMIB [Suspect]
     Active Substance: BORTEZOMIB
     Indication: Plasma cell myeloma
     Dosage: UNK
     Route: 065
     Dates: start: 20220928, end: 20221026
  2. SMECTA [Concomitant]
     Active Substance: MONTMORILLONITE
     Indication: Clostridium difficile infection
     Dosage: UNK
     Route: 065
     Dates: start: 20221006, end: 20221018
  3. RACECADOTRIL [Concomitant]
     Active Substance: RACECADOTRIL
     Indication: Clostridium difficile infection
     Dosage: UNK
     Route: 065
     Dates: start: 20221006, end: 20221018
  4. PIPERACILLIN SODIUM\TAZOBACTAM SODIUM [Concomitant]
     Active Substance: PIPERACILLIN SODIUM\TAZOBACTAM SODIUM
     Indication: Clostridium difficile infection
     Dosage: UNK
     Route: 065
     Dates: start: 20221008, end: 20221012
  5. VANCOMYCIN [Concomitant]
     Active Substance: VANCOMYCIN
     Indication: Clostridium difficile infection
     Dosage: UNK
     Route: 065
     Dates: start: 20221008, end: 20221017
  6. FILGRASTIM [Concomitant]
     Active Substance: FILGRASTIM
     Indication: Neutropenia
     Dosage: UNK
     Route: 065
     Dates: start: 20221008, end: 20221018
  7. TRANEXAMIC ACID [Concomitant]
     Active Substance: TRANEXAMIC ACID
     Indication: Gingival bleeding
     Dosage: UNK
     Route: 065
     Dates: start: 20221014, end: 20221018

REACTIONS (2)
  - Clostridium difficile colitis [Recovered/Resolved]
  - Intestinal sepsis [Recovered/Resolved]

NARRATIVE: CASE EVENT DATE: 20221006
